FAERS Safety Report 5964455-3 (Version None)
Quarter: 2008Q4

REPORT INFORMATION
  Report Type: 
  Country: None (occurrence: None)
  Receive Date: 20081125
  Receipt Date: 20081114
  Transmission Date: 20090506
  Serious: Yes (Disabling, Other)
  Sender: FDA-Public Use
  Company Number: GB-RANBAXY-2008RR-19028

PATIENT
  Age: 46 Year
  Sex: Female

DRUGS (4)
  1. GABAPENTIN [Suspect]
     Indication: PAIN
     Dosage: 300 MG, TID
     Route: 048
     Dates: start: 20040701
  2. DEXAMETHASONE 1.5MG TAB [Concomitant]
     Route: 048
  3. OXYCONTIN [Concomitant]
     Route: 048
  4. OXYNORM [Concomitant]
     Route: 048

REACTIONS (5)
  - BLISTER [None]
  - MOUTH ULCERATION [None]
  - OROPHARYNGEAL BLISTERING [None]
  - SKIN ULCER [None]
  - STEVENS-JOHNSON SYNDROME [None]
